FAERS Safety Report 8496052 (Version 3)
Quarter: 2014Q3

REPORT INFORMATION
  Report Type: Spontaneous
  Country: DE (occurrence: DE)
  Receive Date: 20080311
  Receipt Date: 20140728
  Transmission Date: 20150326
  Serious: Yes (Life-Threatening, Hospitalization, Other)
  Sender: FDA-Public Use
  Company Number: DE-RANBAXY-2008US-13321

PATIENT

DRUGS (55)
  1. ACETYLCYSTEINE. [Suspect]
     Active Substance: ACETYLCYSTEINE
     Indication: MUCOUS MEMBRANE DISORDER
     Dosage: 300 MG, BID
     Route: 048
     Dates: start: 20050629, end: 20050712
  2. RINGERLSG [Suspect]
     Active Substance: CALCIUM CHLORIDE\POTASSIUM CHLORIDE\SODIUM CHLORIDE
     Indication: VOLUME BLOOD INCREASED
  3. PARACEFAN [Suspect]
     Active Substance: CLONIDINE
     Indication: ALCOHOL WITHDRAWAL SYNDROME
     Dosage: 1.5 MG, QD
     Route: 042
     Dates: start: 20050628, end: 20050630
  4. PARACEFAN [Suspect]
     Active Substance: CLONIDINE
     Dosage: 1.5 MG, QD
     Route: 042
     Dates: start: 20050703, end: 20050704
  5. BEROTEC [Suspect]
     Active Substance: FENOTEROL HYDROBROMIDE
     Indication: CHRONIC OBSTRUCTIVE PULMONARY DISEASE
     Dosage: 2-3 TIMES, WEEKLY
     Route: 050
     Dates: start: 20040601
  6. PREDNISOLONE. [Suspect]
     Active Substance: PREDNISOLONE
     Dosage: 50 MG, QD
     Route: 048
     Dates: start: 20050628, end: 20050705
  7. PREDNISOLONE. [Suspect]
     Active Substance: PREDNISOLONE
     Dosage: 5 MG, UNK
     Route: 048
  8. HALOPERIDOL. [Suspect]
     Active Substance: HALOPERIDOL
     Dosage: 10 GTT, QD
     Route: 048
     Dates: start: 20050703, end: 20050703
  9. THEOPHYLLIN [Suspect]
     Active Substance: THEOPHYLLINE
     Indication: CHRONIC OBSTRUCTIVE PULMONARY DISEASE
     Dosage: 600 MG, QD
     Route: 048
     Dates: start: 20050703, end: 20050709
  10. THEOPHYLLIN [Suspect]
     Active Substance: THEOPHYLLINE
     Dosage: 200 MG, UNK
     Route: 042
     Dates: start: 20050718, end: 20050718
  11. CA-MINERALIEN [Suspect]
     Active Substance: CALCIUM
     Indication: OSTEOPOROSIS
     Dosage: 500 MG, BID
     Route: 048
     Dates: start: 20050715, end: 20050718
  12. GASTRACID (OMEPRAZOLE) [Suspect]
     Active Substance: OMEPRAZOLE
     Indication: GASTRIC DISORDER
     Dosage: 20 MG, ONCE IN EVENING
     Route: 048
     Dates: start: 20050719
  13. THEOPHYLLIN [Suspect]
     Active Substance: THEOPHYLLINE
     Dosage: 600 MG, UNK
  14. PREDNISOLONE. [Suspect]
     Active Substance: PREDNISOLONE
     Dosage: 15 MG, QD
     Route: 048
     Dates: start: 20050716, end: 20050718
  15. KALINOR-BRAUSETABLETTEN [Suspect]
     Active Substance: POTASSIUM CARBONATE\POTASSIUM CITRATE
     Indication: HYPOKALAEMIA
     Dosage: 1 IN 1 D
     Route: 048
     Dates: start: 20050704, end: 20050714
  16. ATMADISC [Suspect]
     Active Substance: FLUTICASONE PROPIONATE\SALMETEROL XINAFOATE
     Indication: CHRONIC OBSTRUCTIVE PULMONARY DISEASE
     Dosage: UNK
     Route: 050
  17. ACETYLCYSTEINE. [Suspect]
     Active Substance: ACETYLCYSTEINE
     Indication: EVIDENCE BASED TREATMENT
     Dosage: 600 MG, QD
     Route: 048
     Dates: start: 20050629, end: 20050712
  18. DISTRANEURIN [Suspect]
     Active Substance: CLOMETHIAZOLE
     Indication: ALCOHOL WITHDRAWAL SYNDROME
     Dosage: 2 DOSAGE FORMS, 3 IN 1 D
     Route: 048
     Dates: start: 20050630, end: 20050703
  19. TRANXILIUM [Suspect]
     Active Substance: CLORAZEPATE DIPOTASSIUM
     Indication: SEDATION
     Dosage: 5 MG, TID + 10MG AT NIGHT
     Route: 048
     Dates: start: 20050627, end: 20050702
  20. TRANXILIUM [Suspect]
     Active Substance: CLORAZEPATE DIPOTASSIUM
     Dosage: 5 MG, TID + 10 MG AT NIGHT
     Route: 048
     Dates: start: 20050705, end: 20050705
  21. AMBROXOL [Suspect]
     Active Substance: AMBROXOL
     Indication: MUCOUS MEMBRANE DISORDER
     Dosage: 14 GTT, BID
     Route: 048
     Dates: start: 20050701, end: 20050718
  22. FUROSEMID [Suspect]
     Active Substance: FUROSEMIDE
     Indication: HYPERTENSION
     Dosage: 40 MG, QD
     Route: 048
     Dates: start: 20050707
  23. SALUTEC [Suspect]
     Active Substance: HYDROCHLOROTHIAZIDE\RAMIPRIL
     Indication: CORONARY ARTERY DISEASE
     Dosage: 5/25 DAILY
     Route: 048
     Dates: start: 20050703
  24. ISOPTIN SR [Suspect]
     Active Substance: VERAPAMIL HYDROCHLORIDE
     Indication: ATRIAL FIBRILLATION
     Dosage: 80 MG, BID
     Route: 048
     Dates: start: 20050709
  25. DELIX [Suspect]
     Active Substance: RAMIPRIL
     Indication: CORONARY ARTERY DISEASE
     Dosage: 1 IN 1 D
     Route: 048
     Dates: start: 20050630, end: 20050702
  26. AVALOX [Suspect]
     Active Substance: MOXIFLOXACIN HYDROCHLORIDE
     Indication: CHRONIC OBSTRUCTIVE PULMONARY DISEASE
     Dosage: 400 MG, QD
     Route: 048
     Dates: start: 20050627, end: 20050703
  27. AVALOX [Suspect]
     Active Substance: MOXIFLOXACIN HYDROCHLORIDE
     Indication: INFECTION
  28. HALOPERIDOL. [Suspect]
     Active Substance: HALOPERIDOL
     Indication: SEDATION
     Dosage: 10 GTT, QD
     Route: 048
     Dates: start: 20050629, end: 20050630
  29. SPIRIVA [Suspect]
     Active Substance: TIOTROPIUM BROMIDE MONOHYDRATE
     Indication: CHRONIC OBSTRUCTIVE PULMONARY DISEASE
     Dosage: 1 IN 1 D
     Route: 050
     Dates: start: 20040601
  30. VERAGAMMA [Suspect]
     Active Substance: VERAPAMIL HYDROCHLORIDE
     Indication: TACHYARRHYTHMIA
     Dosage: 80 MG-240MG, DAILY
     Route: 048
     Dates: start: 20050718
  31. OSTEOPLUS BT [Suspect]
     Active Substance: CALCIUM CARBONATE\CHOLECALCIFEROL
     Indication: OSTEOPOROSIS
     Dosage: 2 IN 1 D
     Route: 048
     Dates: start: 20050719
  32. RINGERLSG [Suspect]
     Active Substance: CALCIUM CHLORIDE\POTASSIUM CHLORIDE\SODIUM CHLORIDE
     Indication: FLUID REPLACEMENT
     Dosage: 1000 ML, QD
     Route: 042
     Dates: start: 20050627, end: 20050703
  33. HEPARIN [Suspect]
     Active Substance: HEPARIN SODIUM
     Indication: PROPHYLAXIS
     Dosage: 25000 IU, UNK
     Route: 058
     Dates: start: 20050627, end: 20050709
  34. BRICANYL [Suspect]
     Active Substance: TERBUTALINE SULFATE
     Indication: DYSPNOEA
     Dosage: 1 AMPOULE, UNK
     Route: 058
     Dates: start: 20050627, end: 20050709
  35. PANTOZOL [Suspect]
     Active Substance: PANTOPRAZOLE SODIUM
     Indication: PROPHYLAXIS
     Dosage: 40 MG, QD
     Route: 048
     Dates: start: 20050703, end: 20050718
  36. DELIX PLUS [Suspect]
     Active Substance: HYDROCHLOROTHIAZIDE\RAMIPRIL
     Indication: CARDIAC DISORDER
     Dosage: UNK
     Route: 048
  37. OXAZEPAM. [Suspect]
     Active Substance: OXAZEPAM
     Indication: SEDATION
     Dosage: UNK
     Route: 048
     Dates: start: 20050708, end: 20050708
  38. FORADIL [Suspect]
     Active Substance: FORMOTEROL FUMARATE
     Indication: CHRONIC OBSTRUCTIVE PULMONARY DISEASE
     Dosage: 2 IN 1 D
     Route: 050
     Dates: start: 20050629, end: 20050718
  39. THEOPHYLLIN [Suspect]
     Active Substance: THEOPHYLLINE
     Dosage: 200 MG - 600 MG
     Route: 042
     Dates: start: 20050627, end: 20050630
  40. THEOPHYLLIN [Suspect]
     Active Substance: THEOPHYLLINE
     Dosage: 200 MG, UNK
     Route: 042
     Dates: start: 20050721, end: 20050721
  41. PREDNISOLONE. [Suspect]
     Active Substance: PREDNISOLONE
     Dosage: 100 MG, QD
     Route: 048
     Dates: start: 20050721, end: 20050721
  42. NITRO [Suspect]
     Active Substance: NITROGLYCERIN
     Indication: HYPERTENSION
     Dosage: 50 MG, UNK
     Route: 042
     Dates: start: 20050702, end: 20050702
  43. ALT-INSULIN [Suspect]
     Active Substance: FRUCTOSE\INSULIN BEEF
     Indication: BLOOD GLUCOSE
     Dosage: UNK
     Route: 058
     Dates: start: 20050703, end: 20050703
  44. NORVASC [Suspect]
     Active Substance: AMLODIPINE BESYLATE
     Indication: CARDIAC DISORDER
     Dosage: 5 MG, QD
     Route: 048
     Dates: start: 20050704, end: 20050709
  45. DIGIMERCK [Suspect]
     Active Substance: DIGITOXIN
     Indication: CARDIAC DISORDER
     Dosage: 0.1 MG, QD
     Route: 048
     Dates: start: 20050708
  46. MARCUMAR [Suspect]
     Active Substance: PHENPROCOUMON
     Indication: ATRIAL FIBRILLATION
     Dosage: UNK
     Route: 048
     Dates: start: 20050710
  47. DECORTIN H [Suspect]
     Active Substance: PREDNISOLONE
     Indication: CHRONIC OBSTRUCTIVE PULMONARY DISEASE
     Dosage: 15 MG, QD
     Route: 048
     Dates: start: 20050716, end: 20050718
  48. JUNIK [Suspect]
     Active Substance: BECLOMETHASONE DIPROPIONATE
     Indication: CHRONIC OBSTRUCTIVE PULMONARY DISEASE
     Dosage: 2 IN 1 D
     Route: 050
     Dates: start: 20050627, end: 20050715
  49. PANTOZOL [Suspect]
     Active Substance: PANTOPRAZOLE SODIUM
     Dosage: UNK
     Route: 048
     Dates: start: 20050629, end: 20050630
  50. PREDNISOLONE. [Suspect]
     Active Substance: PREDNISOLONE
     Indication: CHRONIC OBSTRUCTIVE PULMONARY DISEASE
     Dosage: 20 MG, QD
     Route: 048
     Dates: start: 20050719
  51. PREDNISOLONE. [Suspect]
     Active Substance: PREDNISOLONE
     Dosage: 80 MG, QD
     Route: 048
     Dates: start: 20050707, end: 20050715
  52. AMBROXOL [Suspect]
     Active Substance: AMBROXOL
     Indication: EVIDENCE BASED TREATMENT
  53. DECORTIN H [Suspect]
     Active Substance: PREDNISOLONE
     Dosage: 100 MG, QD
     Route: 048
     Dates: start: 20050721, end: 20050721
  54. VIGANTOLETTEN [Suspect]
     Active Substance: CHOLECALCIFEROL
     Indication: OSTEOPOROSIS
     Dosage: 1000 IU, QD
     Route: 048
     Dates: start: 20050718, end: 20050718
  55. VERAGAMMA [Suspect]
     Active Substance: VERAPAMIL HYDROCHLORIDE
     Dosage: 80 MG, TID
     Route: 048

REACTIONS (6)
  - Pruritus [Recovering/Resolving]
  - Stevens-Johnson syndrome [Recovering/Resolving]
  - Blister [Recovering/Resolving]
  - Nikolsky^s sign [Recovering/Resolving]
  - Pyrexia [Recovering/Resolving]
  - Toxic epidermal necrolysis [Recovering/Resolving]

NARRATIVE: CASE EVENT DATE: 20050721
